FAERS Safety Report 17064890 (Version 2)
Quarter: 2019Q4

REPORT INFORMATION
  Report Type: Report from Study
  Country: GB (occurrence: GB)
  Receive Date: 20191122
  Receipt Date: 20191211
  Transmission Date: 20200122
  Serious: Yes (Other)
  Sender: FDA-Public Use
  Company Number: GB-SA-2019SA319442

PATIENT
  Age: 70 Year
  Sex: Female

DRUGS (1)
  1. RASBURICASE [Suspect]
     Active Substance: RASBURICASE
     Indication: ACUTE MYELOID LEUKAEMIA
     Dosage: 3MG FIXED DOSE/ 2 DOSES

REACTIONS (3)
  - Product use issue [Unknown]
  - Blood potassium increased [Recovered/Resolved]
  - Tumour lysis syndrome [Unknown]
